FAERS Safety Report 18262030 (Version 1)
Quarter: 2020Q3

REPORT INFORMATION
  Report Type: Spontaneous
  Country: PL (occurrence: PL)
  Receive Date: 20200914
  Receipt Date: 20200914
  Transmission Date: 20201103
  Serious: Yes (Disabling)
  Sender: FDA-Public Use
  Company Number: NVSC2020PL247439

PATIENT
  Age: 84 Year
  Sex: Male

DRUGS (1)
  1. LEVOXAL (LEVOFLOXACIN) [Suspect]
     Active Substance: LEVOFLOXACIN
     Indication: PROPHYLAXIS
     Dosage: 1 DF, QD (1 DOSAGE FORMS DAILY)
     Route: 048
     Dates: start: 20200206, end: 20200208

REACTIONS (4)
  - Tendon pain [Recovering/Resolving]
  - Hypokinesia [Not Recovered/Not Resolved]
  - Gait inability [Not Recovered/Not Resolved]
  - Pain in extremity [Recovering/Resolving]

NARRATIVE: CASE EVENT DATE: 202002
